FAERS Safety Report 7535876-2 (Version None)
Quarter: 2011Q2

REPORT INFORMATION
  Report Type: 
  Country: None (occurrence: None)
  Receive Date: 20110524
  Receipt Date: 20110210
  Transmission Date: 20111010
  Serious: Yes (Hospitalization)
  Sender: FDA-Public Use
  Company Number: 017672

PATIENT
  Sex: Female
  Weight: 137 kg

DRUGS (4)
  1. CIMZIA [Suspect]
     Indication: CROHN'S DISEASE
     Dosage: (2 SHOTS SUBCUTANEOUS) ; (2 SHOTS SUBCUTANEOUS)
     Route: 058
     Dates: start: 20100401
  2. CIMZIA [Suspect]
     Indication: CROHN'S DISEASE
     Dosage: (2 SHOTS SUBCUTANEOUS) ; (2 SHOTS SUBCUTANEOUS)
     Route: 058
     Dates: end: 20100810
  3. WARFARIN SODIUM [Concomitant]
  4. FUROSEMIDE [Concomitant]

REACTIONS (4)
  - NASOPHARYNGITIS [None]
  - SINUS CONGESTION [None]
  - ATRIAL FIBRILLATION [None]
  - FLUSHING [None]
